FAERS Safety Report 16449108 (Version 1)
Quarter: 2019Q2

REPORT INFORMATION
  Report Type: Spontaneous
  Country: US (occurrence: US)
  Receive Date: 20190508
  Receipt Date: 20190508
  Transmission Date: 20190711
  Serious: Yes (Hospitalization)
  Sender: FDA-Public Use
  Company Number: None

PATIENT
  Age: 31 Year
  Sex: Female
  Weight: 50.7 kg

DRUGS (1)
  1. CISPLATIN. [Suspect]
     Active Substance: CISPLATIN
     Dates: end: 20190410

REACTIONS (10)
  - Chills [None]
  - Thrombocytopenia [None]
  - Neutropenia [None]
  - Dehydration [None]
  - Packed red blood cell transfusion [None]
  - Staphylococcal infection [None]
  - Blood culture positive [None]
  - Asthenia [None]
  - Anaemia [None]
  - Pyrexia [None]

NARRATIVE: CASE EVENT DATE: 20190411
